FAERS Safety Report 4404358-9 (Version None)
Quarter: 2004Q3

REPORT INFORMATION
  Report Type: 
  Country: None (occurrence: None)
  Receive Date: 20040720
  Receipt Date: 20040712
  Transmission Date: 20050211
  Serious: Yes (Hospitalization)
  Sender: FDA-Public Use
  Company Number: HQWYE520018JUN04

PATIENT
  Age: 73 Year
  Sex: Female
  Weight: 52.8 kg

DRUGS (2)
  1. MYLOTARG [Suspect]
     Indication: ACUTE MYELOID LEUKAEMIA
     Dosage: 17 MG 1X PER 1 DAY
     Dates: start: 20020924, end: 20020924
  2. DIFLUCAN [Concomitant]

REACTIONS (6)
  - ABDOMINAL DISTENSION [None]
  - ASCITES [None]
  - BLOOD CALCIUM DECREASED [None]
  - BLOOD CHLORIDE INCREASED [None]
  - BLOOD PHOSPHORUS DECREASED [None]
  - WEIGHT INCREASED [None]
